FAERS Safety Report 6230348-X (Version None)
Quarter: 2009Q2

REPORT INFORMATION
  Report Type: 
  Country: None (occurrence: None)
  Receive Date: 20090611
  Receipt Date: 20090602
  Transmission Date: 20091009
  Serious: Yes (Hospitalization)
  Sender: FDA-Public Use
  Company Number: GCKR2009US06452

PATIENT
  Age: 28 Year
  Sex: Male

DRUGS (7)
  1. VALPROIC ACID [Suspect]
     Indication: MENTAL STATUS CHANGES
     Dosage: 1000 MG QD, (AT NIGHT) TABLET, ORAL; 1000 MG (AS TREATMENT), INTRAVENOUS
     Route: 048
  2. VALPROIC ACID [Suspect]
     Indication: SCHIZOPHRENIA, PARANOID TYPE
     Dosage: 1000 MG QD, (AT NIGHT) TABLET, ORAL; 1000 MG (AS TREATMENT), INTRAVENOUS
     Route: 048
  3. BENZTROPINE MESYLATE [Concomitant]
  4. FLUOXETINE [Concomitant]
  5. ZIPRASIDONE HCL [Concomitant]
  6. NALOXONE (MALOXONE) [Concomitant]
  7. COCAINE (COCAINE) [Concomitant]

REACTIONS (10)
  - BLOOD BICARBONATE DECREASED [None]
  - DRUG SCREEN POSITIVE [None]
  - DRUG TOXICITY [None]
  - ENCEPHALOPATHY [None]
  - FACIAL BONES FRACTURE [None]
  - HAEMODIALYSIS [None]
  - INTENTIONAL OVERDOSE [None]
  - PO2 DECREASED [None]
  - SUICIDE ATTEMPT [None]
  - VICTIM OF CRIME [None]
